FAERS Safety Report 26016179 (Version 1)
Quarter: 2025Q4

REPORT INFORMATION
  Report Type: Spontaneous
  Country: US (occurrence: US)
  Receive Date: 20251110
  Receipt Date: 20251110
  Transmission Date: 20260118
  Serious: No
  Sender: GLENMARK
  Company Number: US-GLENMARK PHARMACEUTICALS-2025GMK102974

PATIENT

DRUGS (1)
  1. VERAPAMIL [Suspect]
     Active Substance: VERAPAMIL HYDROCHLORIDE
     Indication: Hypertension
     Dosage: UNK, ONE TABLET IN THE MORNING, HALF A TABLET AT 2:00 PM, AND HALF A TABLET AT 10:00 PM)
     Route: 048

REACTIONS (3)
  - Pain [Unknown]
  - Recalled product administered [Unknown]
  - Drug effect less than expected [Unknown]
